FAERS Safety Report 10100881 (Version 2)
Quarter: 2014Q2

REPORT INFORMATION
  Report Type: Spontaneous
  Country: NL (occurrence: NL)
  Receive Date: 20140423
  Receipt Date: 20140506
  Transmission Date: 20141212
  Serious: Yes (Hospitalization)
  Sender: FDA-Public Use
  Company Number: NL-ALLERGAN-1407951US

PATIENT
  Age: 69 Year
  Sex: Female
  Weight: 70 kg

DRUGS (2)
  1. GANFORT [Suspect]
     Indication: GLAUCOMA
     Dosage: UNK
     Route: 047
     Dates: start: 201312, end: 20140102
  2. TEGRETOL [Concomitant]
     Dosage: 400 MG, BID
     Dates: start: 20111105

REACTIONS (4)
  - Status epilepticus [Recovered/Resolved]
  - Affect lability [Recovered/Resolved]
  - Thinking abnormal [Recovered/Resolved]
  - Poor quality sleep [Recovered/Resolved]
